FAERS Safety Report 4523883-3 (Version None)
Quarter: 2004Q4

REPORT INFORMATION
  Report Type: 
  Country: None (occurrence: None)
  Receive Date: 20041210
  Receipt Date: 20041130
  Transmission Date: 20050328
  Serious: Yes (Hospitalization)
  Sender: FDA-Public Use
  Company Number: PHHO2004CA16962

PATIENT
  Age: 51 Year
  Sex: Female

DRUGS (1)
  1. ZELNORM [Suspect]
     Dates: start: 20041026

REACTIONS (5)
  - BARIUM ENEMA [None]
  - COLONOSCOPY [None]
  - ENDOSCOPY UPPER GASTROINTESTINAL TRACT [None]
  - POLYPECTOMY [None]
  - REFLUX OESOPHAGITIS [None]
